FAERS Safety Report 13616272 (Version 1)
Quarter: 2017Q2

REPORT INFORMATION
  Report Type: Spontaneous
  Country: US (occurrence: US)
  Receive Date: 20170606
  Receipt Date: 20170606
  Transmission Date: 20170830
  Serious: No
  Sender: FDA-Public Use
  Company Number: US-TEVA-765700ACC

PATIENT
  Sex: Female

DRUGS (2)
  1. EQ TIOCONAZOLE 1DAY [Suspect]
     Active Substance: TIOCONAZOLE
     Indication: FUNGAL INFECTION
     Dates: start: 20170408, end: 20170409
  2. EQUATE MICONAZOLE 3 [Suspect]
     Active Substance: MICONAZOLE
     Indication: FUNGAL INFECTION
     Dosage: ONCE
     Dates: start: 20170327, end: 20170329

REACTIONS (1)
  - Drug ineffective [Unknown]

NARRATIVE: CASE EVENT DATE: 20170410
